FAERS Safety Report 14425755 (Version 1)
Quarter: 2018Q1

REPORT INFORMATION
  Report Type: Spontaneous
  Country: US (occurrence: US)
  Receive Date: 20180122
  Receipt Date: 20180122
  Transmission Date: 20180509
  Serious: No
  Sender: FDA-Public Use
  Company Number: None

PATIENT
  Age: 26 Year
  Sex: Male

DRUGS (1)
  1. ENVARSUS XR [Suspect]
     Active Substance: TACROLIMUS
     Indication: ORGAN TRANSPLANT

REACTIONS (6)
  - Immune system disorder [None]
  - Influenza [None]
  - Chills [None]
  - Cough [None]
  - Pain [None]
  - Pulmonary congestion [None]

NARRATIVE: CASE EVENT DATE: 20180121
